FAERS Safety Report 19747904 (Version 1)
Quarter: 2021Q3

REPORT INFORMATION
  Report Type: Spontaneous
  Country: US (occurrence: US)
  Receive Date: 20210825
  Receipt Date: 20210825
  Transmission Date: 20211014
  Serious: Yes (Other)
  Sender: FDA-Public Use
  Company Number: US-PAIPHARMA-2021-US-016456

PATIENT
  Age: 4 Year
  Sex: Female

DRUGS (3)
  1. LEVETIRACETAM (NON?SPECIFIC) [Suspect]
     Active Substance: LEVETIRACETAM
     Indication: EPILEPSY
     Dosage: 20 MG/KG TWICE DAILY
  2. SODIUM ACETATE. [Concomitant]
     Active Substance: SODIUM ACETATE
  3. SODIUM CHLORIDE. [Suspect]
     Active Substance: SODIUM CHLORIDE
     Indication: BRAIN OEDEMA
     Route: 042

REACTIONS (2)
  - Acute kidney injury [Recovered/Resolved]
  - Calculus urinary [Recovered/Resolved]
